FAERS Safety Report 6121515-4 (Version None)
Quarter: 2009Q1

REPORT INFORMATION
  Report Type: 
  Country: None (occurrence: None)
  Receive Date: 20090313
  Receipt Date: 20090302
  Transmission Date: 20090719
  Serious: Yes (Other)
  Sender: FDA-Public Use
  Company Number: DSU-2009-00558

PATIENT
  Sex: Female
  Weight: 66 kg

DRUGS (2)
  1. OLMESARTAN MEDOXOMIL [Suspect]
     Indication: HYPERTENSION
     Dosage: 40 MG (40 MG, QD) PER ORAL
     Route: 048
  2. NORVASC [Concomitant]

REACTIONS (5)
  - HEART RATE INCREASED [None]
  - HYPOTENSION [None]
  - NERVOUSNESS [None]
  - TENSION [None]
  - WEIGHT INCREASED [None]
